FAERS Safety Report 17178853 (Version 6)
Quarter: 2023Q2

REPORT INFORMATION
  Report Type: Spontaneous
  Country: US (occurrence: US)
  Receive Date: 20191219
  Receipt Date: 20230630
  Transmission Date: 20230722
  Serious: No
  Sender: FDA-Public Use
  Company Number: US-PFIZER INC-2019546894

PATIENT
  Age: 63 Year
  Sex: Female

DRUGS (1)
  1. METHOTREXATE SODIUM [Suspect]
     Active Substance: METHOTREXATE SODIUM
     Indication: Rheumatoid arthritis
     Dosage: UNK

REACTIONS (6)
  - Drug hypersensitivity [Unknown]
  - Alopecia [Unknown]
  - Dysgeusia [Unknown]
  - Nervous system disorder [Unknown]
  - Nausea [Unknown]
  - Dizziness [Unknown]
